FAERS Safety Report 21342298 (Version 1)
Quarter: 2022Q3

REPORT INFORMATION
  Report Type: Spontaneous
  Country: US (occurrence: US)
  Receive Date: 20220916
  Receipt Date: 20220916
  Transmission Date: 20221027
  Serious: No
  Sender: FDA-Public Use
  Company Number: US-ELI_LILLY_AND_COMPANY-US202209005388

PATIENT
  Sex: Female

DRUGS (2)
  1. BASAGLAR [Suspect]
     Active Substance: INSULIN GLARGINE
     Indication: Product used for unknown indication
     Dosage: UNK UNK, UNKNOWN
     Route: 065
     Dates: start: 2021
  2. LISINOPRIL [Concomitant]
     Active Substance: LISINOPRIL
     Indication: Product used for unknown indication

REACTIONS (10)
  - Weight decreased [Unknown]
  - Skin discolouration [Unknown]
  - Headache [Unknown]
  - Pain [Unknown]
  - Somnolence [Unknown]
  - Fatigue [Unknown]
  - Sleep disorder due to general medical condition, insomnia type [Unknown]
  - Feeling abnormal [Unknown]
  - Pruritus [Unknown]
  - Blood glucose decreased [Unknown]
